FAERS Safety Report 13681568 (Version 1)
Quarter: 2017Q2

REPORT INFORMATION
  Report Type: Spontaneous
  Country: DE (occurrence: DE)
  Receive Date: 20170623
  Receipt Date: 20170623
  Transmission Date: 20170830
  Serious: Yes (Life-Threatening)
  Sender: FDA-Public Use
  Company Number: DE-FRESENIUS KABI-FK201705275

PATIENT
  Age: 28 Year
  Sex: Female

DRUGS (3)
  1. OXYTOCIN INJECTION (MANUFACTURER UNKNOWN) [Suspect]
     Active Substance: OXYTOCIN
     Indication: UTERINE ATONY
     Route: 050
  2. OXYTOCIN INJECTION (MANUFACTURER UNKNOWN) [Suspect]
     Active Substance: OXYTOCIN
     Indication: PRODUCT USED FOR UNKNOWN INDICATION
     Route: 042
  3. OXYTOCIN INJECTION (MANUFACTURER UNKNOWN) [Suspect]
     Active Substance: OXYTOCIN
     Indication: PROPHYLAXIS
     Route: 065

REACTIONS (2)
  - Product use issue [Recovered/Resolved]
  - Electrocardiogram QT prolonged [Recovered/Resolved]
